FAERS Safety Report 16886506 (Version 1)
Quarter: 2019Q4

REPORT INFORMATION
  Report Type: Other
  Country: CH (occurrence: CH)
  Receive Date: 20191004
  Receipt Date: 20191004
  Transmission Date: 20200122
  Serious: Yes (Death)
  Sender: FDA-Public Use
  Company Number: CH-SERVIER-S19010558

PATIENT

DRUGS (5)
  1. IDARUBICIN [Concomitant]
     Active Substance: IDARUBICIN
     Indication: ACUTE LYMPHOCYTIC LEUKAEMIA
     Dosage: 21 MG, ONLY ONE DOSE
     Route: 048
     Dates: start: 20190906, end: 20190906
  2. VINCRISTIN [Concomitant]
     Active Substance: VINCRISTINE
     Indication: ACUTE LYMPHOCYTIC LEUKAEMIA
     Dosage: 2 MG, ONLY ONE ADMINISTRATION
     Route: 042
     Dates: start: 20190906, end: 20190906
  3. ONCASPAR [Suspect]
     Active Substance: PEGASPARGASE
     Indication: ACUTE LYMPHOCYTIC LEUKAEMIA
     Dosage: ONE ADMINISTRATION ONLY
     Route: 042
     Dates: start: 20190913, end: 20190913
  4. PREDNISON [Concomitant]
     Active Substance: PREDNISONE
     Indication: ACUTE LYMPHOCYTIC LEUKAEMIA
     Dosage: 120 MG, ONLY ONE ADMINISTRATION
     Route: 042
     Dates: start: 20190906, end: 20190906
  5. CYCLOPHOSPHAMIDE. [Suspect]
     Active Substance: CYCLOPHOSPHAMIDE
     Indication: ACUTE LYMPHOCYTIC LEUKAEMIA
     Dosage: 1580 MG, ONLY ONE ADMINISTRATION
     Route: 042
     Dates: start: 20190901, end: 20190901

REACTIONS (1)
  - Pancreatitis acute [Fatal]

NARRATIVE: CASE EVENT DATE: 20190916
